FAERS Safety Report 10498065 (Version 2)
Quarter: 2014Q4

REPORT INFORMATION
  Report Type: Report from Study
  Country: CO (occurrence: CO)
  Receive Date: 20141006
  Receipt Date: 20141006
  Transmission Date: 20150528
  Serious: Yes (Other)
  Sender: FDA-Public Use
  Company Number: CO-AMGEN-COLSP2014074143

PATIENT
  Age: 46 Year
  Sex: Male
  Weight: 70 kg

DRUGS (1)
  1. VECTIBIX [Suspect]
     Active Substance: PANITUMUMAB
     Indication: COLORECTAL CANCER METASTATIC
     Dosage: 411 MG, EVERY 15 DAYS
     Route: 042
     Dates: start: 20140908

REACTIONS (9)
  - Metastases to bladder [Unknown]
  - Mouth ulceration [Unknown]
  - Discomfort [Unknown]
  - Leukoplakia [Not Recovered/Not Resolved]
  - Tongue ulceration [Unknown]
  - Constipation [Unknown]
  - Rash [Not Recovered/Not Resolved]
  - Dysphagia [Unknown]
  - Mucosal inflammation [Unknown]

NARRATIVE: CASE EVENT DATE: 20140921
